FAERS Safety Report 8094161-3 (Version None)
Quarter: 2012Q1

REPORT INFORMATION
  Report Type: 
  Country: None (occurrence: None)
  Receive Date: 20120130
  Receipt Date: 20120130
  Transmission Date: 20120608
  Serious: Yes (Hospitalization)
  Sender: FDA-Public Use
  Company Number: None

PATIENT
  Age: 55 Year
  Sex: Female
  Weight: 62 kg

DRUGS (3)
  1. INTERFERON [Concomitant]
     Dosage: 96MCG
     Route: 058
     Dates: start: 20110915, end: 20111118
  2. RIBAVIRIN [Interacting]
     Route: 048
  3. TELAPREVIR [Suspect]
     Indication: HEPATITIS C
     Dosage: 750MG
     Route: 048
     Dates: start: 20110915, end: 20111118

REACTIONS (4)
  - PANCREATITIS ACUTE [None]
  - GLOMERULAR FILTRATION RATE DECREASED [None]
  - ANAEMIA [None]
  - ASTHENIA [None]
